FAERS Safety Report 5224308-5 (Version None)
Quarter: 2007Q1

REPORT INFORMATION
  Report Type: 
  Country: None (occurrence: None)
  Receive Date: 20070130
  Receipt Date: 20070123
  Transmission Date: 20070707
  Serious: Yes (Hospitalization)
  Sender: FDA-Public Use
  Company Number: FR-ROXANE LABORATORIES, INC-2007-BP-01256RO

PATIENT
  Age: 80 Year
  Sex: Female

DRUGS (1)
  1. PREDNISONE [Suspect]
     Indication: TEMPORAL ARTERITIS
     Dosage: 80 MG/DAY
     Dates: start: 20000801

REACTIONS (8)
  - ABDOMINAL PAIN [None]
  - DIARRHOEA [None]
  - DUODENITIS [None]
  - ESCHERICHIA BACTERAEMIA [None]
  - GASTRITIS [None]
  - PYREXIA [None]
  - STRONGYLOIDIASIS [None]
  - VOMITING [None]
